FAERS Safety Report 5131551-2 (Version None)
Quarter: 2006Q4

REPORT INFORMATION
  Report Type: 
  Country: None (occurrence: None)
  Receive Date: 20061020
  Receipt Date: 20060628
  Transmission Date: 20070319
  Serious: Yes (Death, Hospitalization, Other)
  Sender: FDA-Public Use
  Company Number: PHHO2006JP10921

PATIENT
  Age: 71 Year
  Sex: Male
  Weight: 50 kg

DRUGS (25)
  1. ENTACAPONE [Suspect]
     Indication: PARKINSON'S DISEASE
     Dosage: 1200MG
     Route: 048
     Dates: start: 20040219, end: 20060402
  2. ENTACAPONE [Suspect]
     Dosage: 600MG
     Route: 048
     Dates: start: 20031120, end: 20040218
  3. ENTACAPONE [Suspect]
     Dosage: 800MG
     Route: 048
     Dates: start: 20060403, end: 20060411
  4. ENTACAPONE [Suspect]
     Dosage: 600MG
     Route: 048
     Dates: start: 20060412
  5. ENTACAPONE [Suspect]
     Dosage: 1200MG
     Route: 048
     Dates: end: 20060704
  6. MADOPAR [Concomitant]
  7. DEPAS [Concomitant]
  8. GASMOTIN [Concomitant]
  9. SYMMETREL [Concomitant]
  10. DOPS [Concomitant]
  11. AMOBAN [Concomitant]
     Dates: start: 20060530
  12. BASEN [Concomitant]
  13. CABASER [Concomitant]
  14. ANAFRANIL [Concomitant]
  15. ALOSENN [Concomitant]
  16. PURSENNID [Concomitant]
  17. INTEBAN [Concomitant]
  18. KETOPROFEN [Concomitant]
  19. ADOFEED [Concomitant]
  20. KERATINAMIN [Concomitant]
  21. ARICEPT [Concomitant]
  22. SEROQUEL [Concomitant]
  23. EUGLUCON [Concomitant]
  24. KETOPROFEN [Concomitant]
  25. KIDMIN [Concomitant]

REACTIONS (35)
  - ABDOMINAL DISTENSION [None]
  - ABDOMINAL PAIN [None]
  - ABNORMAL FAECES [None]
  - ACUTE RESPIRATORY DISTRESS SYNDROME [None]
  - ANOREXIA [None]
  - ASCITES [None]
  - BLOOD GLUCOSE DECREASED [None]
  - BRADYCARDIA [None]
  - BUNDLE BRANCH BLOCK RIGHT [None]
  - CARDIAC ARREST [None]
  - CHEST PAIN [None]
  - CHILLS [None]
  - CONSTIPATION [None]
  - DYSPHAGIA [None]
  - DYSPNOEA [None]
  - DYSURIA [None]
  - GASTRIC DISORDER [None]
  - GENERALISED OEDEMA [None]
  - HYPERTENSION [None]
  - ILEUS PARALYTIC [None]
  - INTUBATION [None]
  - MALAISE [None]
  - MUSCLE RIGIDITY [None]
  - MYALGIA [None]
  - PLEURAL EFFUSION [None]
  - PNEUMONIA [None]
  - PROTEINURIA [None]
  - PULMONARY OEDEMA [None]
  - PURPURA [None]
  - PYREXIA [None]
  - RASH ERYTHEMATOUS [None]
  - RENAL FAILURE ACUTE [None]
  - SOMNOLENCE [None]
  - URINE OUTPUT DECREASED [None]
  - VOMITING [None]
